FAERS Safety Report 17681474 (Version 1)
Quarter: 2020Q2

REPORT INFORMATION
  Report Type: Spontaneous
  Country: GB (occurrence: GB)
  Receive Date: 20200417
  Receipt Date: 20200417
  Transmission Date: 20200714
  Serious: Yes (Hospitalization)
  Sender: FDA-Public Use
  Company Number: GB-JNJFOC-20200417748

PATIENT
  Sex: Female

DRUGS (1)
  1. SIMPONI [Suspect]
     Active Substance: GOLIMUMAB
     Indication: BEHCET^S SYNDROME
     Route: 058

REACTIONS (3)
  - Product use in unapproved indication [Unknown]
  - Hospitalisation [Unknown]
  - Off label use [Unknown]
